FAERS Safety Report 9733480 (Version 2)
Quarter: 2014Q1

REPORT INFORMATION
  Report Type: Report from Study
  Country: FR (occurrence: FR)
  Receive Date: 20131205
  Receipt Date: 20140220
  Transmission Date: 20141002
  Serious: Yes (Other)
  Sender: FDA-Public Use
  Company Number: FR-SA-2013SA126327

PATIENT
  Age: 66 Year
  Sex: Female

DRUGS (3)
  1. CAMPATH [Suspect]
     Indication: CHRONIC LYMPHOCYTIC LEUKAEMIA
     Dosage: REPORTED DOSE: 3 X30MG/D
     Route: 042
     Dates: start: 2013, end: 20130828
  2. ZELITREX [Concomitant]
     Dosage: 1-0-1
     Dates: start: 20130729
  3. PENTACARINAT [Concomitant]
     Indication: PROPHYLAXIS
     Dosage: 1/ MONTHLY. REPORTED INDICATION:PROPHYLAXIS OF LYMPHOPENIA PNEUMOCYSTIS
     Dates: start: 20130812

REACTIONS (1)
  - Epstein-Barr virus associated lymphoma [Not Recovered/Not Resolved]
